FAERS Safety Report 9309948 (Version 1)
Quarter: 2013Q2

REPORT INFORMATION
  Report Type: Spontaneous
  Country: US (occurrence: US)
  Receive Date: 20130527
  Receipt Date: 20130527
  Transmission Date: 20140414
  Serious: Yes (Other)
  Sender: FDA-Public Use
  Company Number: US-AMGEN-USASP2013036767

PATIENT
  Age: 46 Year
  Sex: Female

DRUGS (1)
  1. ENBREL [Suspect]
     Indication: PSORIATIC ARTHROPATHY
     Dosage: 25 MG, 2 TIMES/WK
     Dates: start: 20020101

REACTIONS (4)
  - Diabetes mellitus [Recovered/Resolved]
  - Tonsillar hypertrophy [Not Recovered/Not Resolved]
  - Sleep apnoea syndrome [Not Recovered/Not Resolved]
  - Infection [Not Recovered/Not Resolved]
